FAERS Safety Report 18957841 (Version 1)
Quarter: 2021Q1

REPORT INFORMATION
  Report Type: Spontaneous
  Country: US (occurrence: US)
  Receive Date: 20210302
  Receipt Date: 20210302
  Transmission Date: 20210420
  Serious: Yes (Death)
  Sender: FDA-Public Use
  Company Number: None

PATIENT
  Age: 69 Year
  Sex: Female
  Weight: 73.8 kg

DRUGS (10)
  1. ANORO [Concomitant]
     Active Substance: UMECLIDINIUM BROMIDE\VILANTEROL TRIFENATATE
  2. MVI [Concomitant]
     Active Substance: VITAMINS
  3. ATORVASTATIN [Concomitant]
     Active Substance: ATORVASTATIN
  4. POTASSIUM [Concomitant]
     Active Substance: POTASSIUM
  5. IBRANCE [Suspect]
     Active Substance: PALBOCICLIB
     Indication: BREAST CANCER
     Route: 048
     Dates: start: 20210122, end: 20210228
  6. ALBUTEROL. [Concomitant]
     Active Substance: ALBUTEROL
  7. LETROZOLE. [Concomitant]
     Active Substance: LETROZOLE
  8. MAGNESIUM [Concomitant]
     Active Substance: MAGNESIUM
  9. VIT D [Concomitant]
     Active Substance: VITAMIN D NOS
  10. ASPIRIN. [Concomitant]
     Active Substance: ASPIRIN

REACTIONS (1)
  - Death [None]

NARRATIVE: CASE EVENT DATE: 20210228
